FAERS Safety Report 8947669 (Version 1)
Quarter: 2012Q4

REPORT INFORMATION
  Report Type: 
  Country: US (occurrence: US)
  Receive Date: 20121205
  Receipt Date: 20121205
  Transmission Date: 20130627
  Serious: No
  Sender: FDA-Public Use
  Company Number: US-009507513-1212USA001699

PATIENT
  Age: 3 Year
  Sex: Female

DRUGS (1)
  1. CLARITIN REDITABS [Suspect]
     Indication: HYPERSENSITIVITY
     Dosage: 10 mg, bid
     Route: 048
     Dates: start: 20121119

REACTIONS (2)
  - Drug administered to patient of inappropriate age [Unknown]
  - Overdose [Unknown]
